FAERS Safety Report 15423927 (Version 2)
Quarter: 2021Q1

REPORT INFORMATION
  Report Type: Spontaneous
  Country: US (occurrence: US)
  Receive Date: 20180925
  Receipt Date: 20210312
  Transmission Date: 20210419
  Serious: Yes (Hospitalization, Other)
  Sender: FDA-Public Use
  Company Number: US-MYLANLABS-2018M1068057

PATIENT
  Age: 47 Year
  Sex: Male
  Weight: 58 kg

DRUGS (5)
  1. CLOPIDOGREL [Suspect]
     Active Substance: CLOPIDOGREL BISULFATE
     Indication: DEEP VEIN THROMBOSIS
     Dosage: 75 MILLIGRAM
     Route: 065
  2. HEPARIN [Suspect]
     Active Substance: HEPARIN SODIUM
     Indication: DEEP VEIN THROMBOSIS
  3. CANGRELOR [Concomitant]
     Active Substance: CANGRELOR
     Dosage: CONTINUOUS INFUSION OF 2?4 MICROG/KG/MIN THROUGHOUT CPB VIA A DEDICATED INTRAVENOUS ACCESS
  4. HEPARIN [Suspect]
     Active Substance: HEPARIN SODIUM
     Indication: ANTICOAGULANT THERAPY
     Dosage: ROUTE: INFUSION
     Route: 050
  5. CANGRELOR [Concomitant]
     Active Substance: CANGRELOR
     Indication: ANTICOAGULANT THERAPY
     Dosage: 30 MICROGRAM/KILOGRAM LOADING DOSE OF CANGRELOR (30 MICROG/KG) WAS ADMINISTERED OVER 1 MINUTE

REACTIONS (2)
  - Heparin-induced thrombocytopenia [Recovered/Resolved]
  - False negative investigation result [Unknown]
